FAERS Safety Report 5863238-2 (Version None)
Quarter: 2008Q3

REPORT INFORMATION
  Report Type: 
  Country: None (occurrence: None)
  Receive Date: 20080828
  Receipt Date: 20080819
  Transmission Date: 20090109
  Serious: Yes (Hospitalization)
  Sender: FDA-Public Use
  Company Number: BR-ABBOTT-08P-020-0471714-00

PATIENT
  Sex: Female

DRUGS (3)
  1. HUMIRA [Suspect]
     Indication: RHEUMATOID ARTHRITIS
     Route: 058
     Dates: start: 20060101
  2. SORGANOL [Concomitant]
     Indication: DRUG USE FOR UNKNOWN INDICATION
  3. NIMESULIDE [Concomitant]
     Indication: RHEUMATOID ARTHRITIS

REACTIONS (3)
  - ABDOMINAL PAIN UPPER [None]
  - BONE EROSION [None]
  - HYPERTENSION [None]
